FAERS Safety Report 5151001-X (Version None)
Quarter: 2006Q4

REPORT INFORMATION
  Report Type: 
  Country: None (occurrence: None)
  Receive Date: 20061108
  Receipt Date: 20061025
  Transmission Date: 20070319
  Serious: Yes (Disabling)
  Sender: FDA-Public Use
  Company Number: 2006PV000031

PATIENT
  Age: 33 Year
  Sex: 0

DRUGS (3)
  1. DEPOCYT (CYTARABINE) [Suspect]
     Indication: ACUTE LYMPHOCYTIC LEUKAEMIA
     Dosage: 50 MG; INTH
     Route: 037
     Dates: start: 20060424, end: 20060720
  2. DEPOCYT (CYTARABINE) [Suspect]
     Indication: LEUKAEMIA RECURRENT
     Dosage: 50 MG; INTH
     Route: 037
     Dates: start: 20060424, end: 20060720
  3. DEXAMETHASONE 4MG TAB [Concomitant]

REACTIONS (3)
  - BLINDNESS [None]
  - CSF PROTEIN INCREASED [None]
  - PAPILLOEDEMA [None]
